FAERS Safety Report 23914469 (Version 1)
Quarter: 2024Q2

REPORT INFORMATION
  Report Type: Spontaneous
  Country: PT (occurrence: PT)
  Receive Date: 20240529
  Receipt Date: 20240529
  Transmission Date: 20240716
  Serious: Yes (Hospitalization, Other)
  Sender: FDA-Public Use
  Company Number: PT-SUN PHARMACEUTICAL INDUSTRIES LTD-2024R1-448172

PATIENT
  Age: 84 Year
  Sex: Female

DRUGS (4)
  1. METRONIDAZOLE [Suspect]
     Active Substance: METRONIDAZOLE
     Indication: Helicobacter infection
     Dosage: UNK
     Route: 065
  2. OMEPRAZOLE [Suspect]
     Active Substance: DONEPEZIL HYDROCHLORIDE\OMEPRAZOLE\OMEPRAZOLE MAGNESIUM
     Indication: Helicobacter infection
     Dosage: UNK
     Route: 065
  3. TETRACYCLINE [Suspect]
     Active Substance: TETRACYCLINE
     Indication: Helicobacter infection
     Dosage: UNK
     Route: 065
  4. BISMUTH SUBCITRATE [Suspect]
     Active Substance: BISMUTH SUBCITRATE
     Indication: Helicobacter infection
     Dosage: UNK
     Route: 065

REACTIONS (1)
  - Pseudomembranous colitis [Recovering/Resolving]
